FAERS Safety Report 6970472-7 (Version None)
Quarter: 2010Q3

REPORT INFORMATION
  Report Type: 
  Country: None (occurrence: None)
  Receive Date: 20100903
  Receipt Date: 20100817
  Transmission Date: 20110219
  Serious: Yes (Death, Hospitalization, Other)
  Sender: FDA-Public Use
  Company Number: FKO201000346

PATIENT
  Age: 42 Year
  Sex: Female

DRUGS (5)
  1. BLEOMYCIN (MANUFACTURER UNKNOWN) (BLEOMYCIN) (BLEOMYCIN) [Suspect]
     Indication: MYCOSIS FUNGOIDES
  2. CYCLOPHOSPHAMIDE [Suspect]
     Indication: MYCOSIS FUNGOIDES
  3. DOXORUBICIN (MANUFACTURER UNKNOWN) (DOXORUBICIN HYDROCHLORIDE) (DOXORU [Suspect]
     Indication: MYCOSIS FUNGOIDES
  4. PREDNISOLONE [Concomitant]
  5. VINCRISTIN (VINCRISTIN) (VINCRISTIN) [Concomitant]

REACTIONS (7)
  - DRUG TOXICITY [None]
  - LEUKOCYTOSIS [None]
  - MENOPAUSE [None]
  - MYCOSIS FUNGOIDES RECURRENT [None]
  - NEOPLASM RECURRENCE [None]
  - PELVIC ABSCESS [None]
  - VAGINAL DISORDER [None]
